FAERS Safety Report 6711618-5 (Version None)
Quarter: 2010Q2

REPORT INFORMATION
  Report Type: 
  Country: None (occurrence: None)
  Receive Date: 20100505
  Receipt Date: 20100429
  Transmission Date: 20101027
  Serious: Yes (Death)
  Sender: FDA-Public Use
  Company Number: PHHY2010US28352

PATIENT
  Sex: Male

DRUGS (1)
  1. RECLAST [Suspect]

REACTIONS (1)
  - DEATH [None]
